FAERS Safety Report 8546856-2 (Version None)
Quarter: 2012Q3

REPORT INFORMATION
  Report Type: 
  Country: None (occurrence: None)
  Receive Date: 20120727
  Receipt Date: 20120329
  Transmission Date: 20120928
  Serious: No
  Sender: FDA-Public Use
  Company Number: US-ASTRAZENECA-2012SE02502

PATIENT
  Age: 77 Year
  Sex: Female
  Weight: 68 kg

DRUGS (15)
  1. SEROQUEL [Suspect]
     Route: 048
  2. SEROQUEL [Suspect]
     Route: 048
  3. SIMVASTATIN [Concomitant]
  4. SEROQUEL [Suspect]
     Route: 048
     Dates: start: 20090101
  5. MULTI-VITAMINS [Concomitant]
  6. DEPAKOTE [Concomitant]
  7. TRAZIDONE [Concomitant]
  8. ZOLOFT [Concomitant]
  9. SEROQUEL [Suspect]
     Indication: ANXIETY
     Route: 048
  10. SEROQUEL [Suspect]
     Indication: DEPRESSION
     Route: 048
  11. ASPIRIN [Concomitant]
  12. SEROQUEL [Suspect]
     Indication: BIPOLAR DISORDER
     Route: 048
  13. SEROQUEL [Suspect]
     Route: 048
  14. SEROQUEL [Suspect]
     Route: 048
     Dates: start: 20090101
  15. SEROQUEL [Suspect]
     Route: 048
     Dates: start: 20090101

REACTIONS (4)
  - BACK PAIN [None]
  - HEARING IMPAIRED [None]
  - ARTHRALGIA [None]
  - SOMNOLENCE [None]
